FAERS Safety Report 24881338 (Version 2)
Quarter: 2025Q1

REPORT INFORMATION
  Report Type: Report from Study
  Country: CA (occurrence: CA)
  Receive Date: 20250124
  Receipt Date: 20250128
  Transmission Date: 20250408
  Serious: No
  Sender: ROCHE
  Company Number: CA-ROCHE-10000188178

PATIENT
  Age: 43 Year
  Sex: Female

DRUGS (8)
  1. OCREVUS [Suspect]
     Active Substance: OCRELIZUMAB
     Indication: Primary progressive multiple sclerosis
     Dosage: MORE DOSAGE INFORMATION IS 300 MG AT DAY 0 AND 14, THEN 600 MG EVERY 6 MONTHS
     Route: 040
     Dates: start: 20220122
  2. NAPROXEN [Concomitant]
     Active Substance: NAPROXEN
     Dosage: MORE DOSAGE INFORMATION IS 375 MG (1 TABLET TAKEN TWICE DAILY) DAYS
  3. Pantoprazole Sodium (Pantoloc) [Concomitant]
     Dosage: MORE DOSAGE INFORMATION IS 40 MG (1 TABLET TAKEN DAILY) DAYS 1 1
  4. FLUOXETINE [Concomitant]
     Active Substance: FLUOXETINE HYDROCHLORIDE
     Dosage: DOSE: 20 MG/5ML, DAILY
  5. TIZANIDINE [Concomitant]
     Active Substance: TIZANIDINE
  6. VITAMIN B12 [Concomitant]
     Active Substance: CYANOCOBALAMIN
  7. OZEMPIC [Concomitant]
     Active Substance: SEMAGLUTIDE
     Route: 058
  8. PREGABALIN [Concomitant]
     Active Substance: PREGABALIN

REACTIONS (8)
  - Oropharyngeal pain [Recovering/Resolving]
  - Cough [Recovering/Resolving]
  - Rhinorrhoea [Recovering/Resolving]
  - Headache [Recovering/Resolving]
  - Pyrexia [Recovered/Resolved]
  - Back pain [Recovering/Resolving]
  - Influenza [Unknown]
  - Nasopharyngitis [Unknown]

NARRATIVE: CASE EVENT DATE: 20250117
